FAERS Safety Report 21144154 (Version 1)
Quarter: 2022Q3

REPORT INFORMATION
  Report Type: Spontaneous
  Country: US (occurrence: None)
  Receive Date: 20220728
  Receipt Date: 20220728
  Transmission Date: 20221027
  Serious: Yes (Hospitalization)
  Sender: FDA-Public Use
  Company Number: 2022A262936

PATIENT
  Age: 459 Month
  Sex: Male

DRUGS (1)
  1. SAPHNELO [Suspect]
     Active Substance: ANIFROLUMAB-FNIA
     Indication: Lupus pneumonitis
     Route: 042
     Dates: start: 20220531

REACTIONS (6)
  - Pneumonia [Unknown]
  - Malaise [Unknown]
  - Illness [Unknown]
  - Fatigue [Unknown]
  - Dizziness [Unknown]
  - General physical condition abnormal [Unknown]

NARRATIVE: CASE EVENT DATE: 20220601
